FAERS Safety Report 8558532-0 (Version None)
Quarter: 2012Q3

REPORT INFORMATION
  Report Type: 
  Country: None (occurrence: None)
  Receive Date: 20120801
  Receipt Date: 20120726
  Transmission Date: 20120928
  Serious: Yes (Hospitalization)
  Sender: FDA-Public Use
  Company Number: DE-ABBOTT-12P-062-0937841-00

PATIENT
  Sex: Female

DRUGS (4)
  1. LEUPROLIDE ACETATE [Suspect]
     Indication: BREAST CANCER
     Route: 058
     Dates: start: 20120222, end: 20120222
  2. TAMOXIFEN CITRATE [Concomitant]
     Indication: PRODUCT USED FOR UNKNOWN INDICATION
     Route: 048
     Dates: start: 20110901
  3. LEUPROLIDE ACETATE [Concomitant]
     Indication: BREAST CANCER
     Route: 058
     Dates: start: 20110901
  4. LEUPROLIDE ACETATE [Concomitant]
     Route: 058
     Dates: start: 20120501

REACTIONS (1)
  - BLOOD PRESSURE INCREASED [None]
